FAERS Safety Report 9335274 (Version 1)
Quarter: 2013Q2

REPORT INFORMATION
  Report Type: Spontaneous
  Country: US (occurrence: US)
  Receive Date: 20130606
  Receipt Date: 20130606
  Transmission Date: 20140414
  Serious: No
  Sender: FDA-Public Use
  Company Number: US-009507513-1306USA000550

PATIENT
  Age: 9 Year
  Sex: Male
  Weight: 24.94 kg

DRUGS (2)
  1. CLARITIN REDITABS [Suspect]
     Indication: HYPERSENSITIVITY
     Dosage: 10 MG, QD
     Route: 048
  2. CLARITIN REDITABS [Suspect]
     Dosage: 20 MG, QD
     Route: 048
     Dates: start: 20130526

REACTIONS (1)
  - Accidental overdose [Not Recovered/Not Resolved]
